FAERS Safety Report 12277851 (Version 3)
Quarter: 2016Q2

REPORT INFORMATION
  Report Type: Spontaneous
  Country: IT (occurrence: IT)
  Receive Date: 20160418
  Receipt Date: 20160601
  Transmission Date: 20160815
  Serious: Yes (Hospitalization)
  Sender: FDA-Public Use
  Company Number: IT-PFIZER INC-2016215505

PATIENT
  Age: 22 Year
  Sex: Female

DRUGS (3)
  1. CITALOPRAM ALMUS [Suspect]
     Active Substance: CITALOPRAM HYDROBROMIDE
     Indication: DEPRESSION
     Dosage: 15 GTT, TOTAL
     Route: 048
     Dates: start: 20160406, end: 20160406
  2. XANAX [Suspect]
     Active Substance: ALPRAZOLAM
     Indication: ANXIETY
     Dosage: 2.5 MG, TOTAL
     Route: 048
     Dates: start: 20160406, end: 20160406
  3. ZOLOFT [Suspect]
     Active Substance: SERTRALINE HYDROCHLORIDE
     Dosage: 10 DF, TOTAL
     Route: 048
     Dates: start: 20160406, end: 20160406

REACTIONS (2)
  - Drug abuse [Recovered/Resolved]
  - Intentional self-injury [Recovered/Resolved]

NARRATIVE: CASE EVENT DATE: 20160406
